FAERS Safety Report 4401982-4 (Version None)
Quarter: 2004Q3

REPORT INFORMATION
  Report Type: 
  Country: None (occurrence: None)
  Receive Date: 20040714
  Receipt Date: 20030224
  Transmission Date: 20050211
  Serious: Yes (Hospitalization)
  Sender: FDA-Public Use
  Company Number: USA030228951

PATIENT
  Age: 22 Year
  Sex: Male

DRUGS (2)
  1. STRATTERA [Suspect]
     Dosage: 900 MG/DAY
     Dates: start: 20030214
  2. BENADRYL [Concomitant]

REACTIONS (2)
  - CONVULSION [None]
  - MULTIPLE DRUG OVERDOSE INTENTIONAL [None]
